FAERS Safety Report 7292668-X (Version None)
Quarter: 2011Q1

REPORT INFORMATION
  Report Type: 
  Country: None (occurrence: None)
  Receive Date: 20110215
  Receipt Date: 20110208
  Transmission Date: 20110831
  Serious: Yes (Death)
  Sender: FDA-Public Use
  Company Number: DE-SANOFI-AVENTIS-2011SA007788

PATIENT
  Age: 64 Year
  Sex: Female

DRUGS (9)
  1. ARAVA [Suspect]
     Dosage: 10 MG
     Route: 048
     Dates: start: 20030601
  2. ARAVA [Suspect]
     Route: 048
     Dates: start: 20100301
  3. ETANERCEPT [Suspect]
     Indication: RHEUMATOID ARTHRITIS
     Dosage: 25 MG
     Route: 065
     Dates: start: 20010801, end: 20020701
  4. IBUPROFEN [Concomitant]
     Route: 065
  5. ARAVA [Suspect]
     Dosage: 4 MG
     Route: 048
  6. INFLIXIMAB [Concomitant]
     Dosage: 200 MG
     Route: 065
     Dates: start: 20020701, end: 20050501
  7. ARAVA [Suspect]
     Dosage: 10 MG THREE TIMES PER WEEK
     Route: 048
     Dates: end: 20100301
  8. PREDNISOLONE [Concomitant]
     Route: 065
  9. DICLOFENAC [Concomitant]
     Route: 065

REACTIONS (7)
  - CIRCULATORY COLLAPSE [None]
  - CARDIAC FAILURE [None]
  - CARDIOGENIC SHOCK [None]
  - RENAL FAILURE [None]
  - ACUTE RESPIRATORY DISTRESS SYNDROME [None]
  - MULTI-ORGAN FAILURE [None]
  - PULMONARY OEDEMA [None]
